FAERS Safety Report 7588795-X (Version None)
Quarter: 2011Q3

REPORT INFORMATION
  Report Type: 
  Country: None (occurrence: None)
  Receive Date: 20110705
  Receipt Date: 20110620
  Transmission Date: 20111222
  Serious: Yes (Other)
  Sender: FDA-Public Use
  Company Number: US-BAYER-2011-053598

PATIENT
  Age: 55 Year
  Sex: Female
  Weight: 111 kg

DRUGS (3)
  1. ASPIRIN [Suspect]
     Indication: ISCHAEMIC HEART DISEASE PROPHYLAXIS
     Dosage: 4 DF, QD
     Route: 048
     Dates: start: 20110521, end: 20110613
  2. NIASPAN [Concomitant]
     Dosage: 1 DF, QD
     Route: 048
     Dates: start: 20100101, end: 20110613
  3. FISH OIL [Concomitant]
     Dosage: 1 DF, QD
     Route: 048
     Dates: start: 20100101

REACTIONS (1)
  - TINNITUS [None]
